FAERS Safety Report 7867014-0 (Version None)
Quarter: 2011Q4

REPORT INFORMATION
  Report Type: 
  Country: None (occurrence: None)
  Receive Date: 20111028
  Receipt Date: 20111019
  Transmission Date: 20120403
  Serious: Yes (Hospitalization)
  Sender: FDA-Public Use
  Company Number: US-JNJFOC-20110608799

PATIENT
  Sex: Female

DRUGS (5)
  1. EXTRA STRENGTH TYLENOL PM [Suspect]
     Indication: INSOMNIA
     Route: 048
     Dates: start: 20110608, end: 20110608
  2. JANUVIA [Concomitant]
     Indication: DIABETES MELLITUS
  3. METFORMIN HCL [Concomitant]
     Indication: DIABETES MELLITUS
  4. VITAMIN D [Concomitant]
     Indication: ROUTINE HEALTH MAINTENANCE
  5. SYNTHROID [Concomitant]
     Indication: THYROID DISORDER

REACTIONS (2)
  - HEADACHE [None]
  - HYPERSENSITIVITY [None]
